FAERS Safety Report 13707477 (Version 3)
Quarter: 2018Q1

REPORT INFORMATION
  Report Type: Other
  Country: US (occurrence: US)
  Receive Date: 20170630
  Receipt Date: 20180131
  Transmission Date: 20180508
  Serious: No
  Sender: FDA-Public Use
  Company Number: US-ACORDA-ACO_139214_2017

PATIENT
  Age: 82 Year
  Sex: Female
  Weight: 81.63 kg

DRUGS (2)
  1. AMPYRA [Suspect]
     Active Substance: DALFAMPRIDINE
     Indication: MULTIPLE SCLEROSIS
     Dosage: 10 MG, Q 12 HRS
     Route: 048
     Dates: start: 201705, end: 201705
  2. CLONAZEPAM. [Concomitant]
     Active Substance: CLONAZEPAM
     Indication: PRODUCT USED FOR UNKNOWN INDICATION
     Dosage: 0.5 MG, UNK
     Route: 065

REACTIONS (9)
  - Gait inability [Recovered/Resolved]
  - Fall [Recovered/Resolved]
  - Dysphagia [Recovered/Resolved]
  - Muscular weakness [Recovered/Resolved]
  - Nasal congestion [Recovered/Resolved]
  - Balance disorder [Recovered/Resolved]
  - Insomnia [Recovered/Resolved]
  - Feeling cold [Recovered/Resolved]
  - Dyspnoea [Recovered/Resolved]

NARRATIVE: CASE EVENT DATE: 201705
